FAERS Safety Report 18006047 (Version 3)
Quarter: 2020Q3

REPORT INFORMATION
  Report Type: Spontaneous
  Country: AT (occurrence: AT)
  Receive Date: 20200710
  Receipt Date: 20200810
  Transmission Date: 20201103
  Serious: Yes (Other)
  Sender: FDA-Public Use
  Company Number: AT-PFIZER INC-2020264507

PATIENT
  Age: 78 Year
  Sex: Female

DRUGS (52)
  1. DONEPEZIL HCL [Suspect]
     Active Substance: DONEPEZIL HYDROCHLORIDE
     Dosage: 10 MG, 1X/DAY
     Dates: start: 2014
  2. DONEPEZIL HCL [Suspect]
     Active Substance: DONEPEZIL HYDROCHLORIDE
     Dosage: 10 MG, 1X/DAY
     Dates: start: 2015
  3. DONEPEZIL HCL [Suspect]
     Active Substance: DONEPEZIL HYDROCHLORIDE
     Dosage: 10 MG, 1X/DAY
     Dates: start: 2019
  4. SERTRALINE HCL [Suspect]
     Active Substance: SERTRALINE HYDROCHLORIDE
     Dosage: 50 MG, 1X/DAY
     Dates: start: 2012
  5. MEMANTINE. [Suspect]
     Active Substance: MEMANTINE
     Dosage: 20 MG, 1X/DAY
     Dates: start: 2011
  6. MEMANTINE. [Suspect]
     Active Substance: MEMANTINE
     Dosage: 20 MG, 1X/DAY
     Dates: start: 2012
  7. MEMANTINE. [Suspect]
     Active Substance: MEMANTINE
     Dosage: 10 MG, 1X/DAY
     Dates: start: 2017, end: 2018
  8. COLECALCIFEROL [Concomitant]
     Active Substance: CHOLECALCIFEROL
     Indication: SUPPLEMENTATION THERAPY
     Dosage: 15 DROPS
     Route: 048
  9. SERTRALINE HCL [Suspect]
     Active Substance: SERTRALINE HYDROCHLORIDE
     Dosage: 50 MG, 1X/DAY
     Dates: start: 2016
  10. SERTRALINE HCL [Suspect]
     Active Substance: SERTRALINE HYDROCHLORIDE
     Dosage: 50 MG, 1X/DAY
     Dates: start: 2017
  11. SERTRALINE HCL [Suspect]
     Active Substance: SERTRALINE HYDROCHLORIDE
     Dosage: 50 MG, 1X/DAY
     Dates: start: 2018
  12. RISPERIDONE. [Suspect]
     Active Substance: RISPERIDONE
     Dosage: 1 MG, 1X/DAY
     Dates: start: 2015, end: 2016
  13. MEMANTINE. [Suspect]
     Active Substance: MEMANTINE
     Dosage: 20 MG, 1X/DAY
     Dates: start: 2010, end: 2016
  14. DONEPEZIL HCL [Suspect]
     Active Substance: DONEPEZIL HYDROCHLORIDE
     Dosage: 10 MG, 1X/DAY
     Dates: start: 2012
  15. SERTRALINE HCL [Suspect]
     Active Substance: SERTRALINE HYDROCHLORIDE
     Indication: DEPRESSION
     Dosage: 50 MG, 1X/DAY
     Dates: start: 200808, end: 2009
  16. RISPERIDONE. [Suspect]
     Active Substance: RISPERIDONE
     Dosage: 2 MG, 1X/DAY
     Dates: start: 2010, end: 2011
  17. RISPERIDONE. [Suspect]
     Active Substance: RISPERIDONE
     Dosage: 0.5 MG, 1X/DAY
     Dates: start: 2018, end: 2019
  18. MEMANTINE. [Suspect]
     Active Substance: MEMANTINE
     Dosage: 20 MG, 1X/DAY
     Dates: start: 2015
  19. DIAZEPAM. [Suspect]
     Active Substance: DIAZEPAM
     Dosage: 1 MG, 1X/DAY
     Dates: start: 201601, end: 2017
  20. DIAZEPAM. [Suspect]
     Active Substance: DIAZEPAM
     Dosage: 2 MG, 1X/DAY
     Dates: start: 2017, end: 2018
  21. DONEPEZIL HCL [Suspect]
     Active Substance: DONEPEZIL HYDROCHLORIDE
     Indication: DEMENTIA ALZHEIMER^S TYPE
     Dosage: 5 MG, 1X/DAY
     Dates: start: 200808, end: 2008
  22. DONEPEZIL HCL [Suspect]
     Active Substance: DONEPEZIL HYDROCHLORIDE
     Dosage: 10 MG, 1X/DAY
     Dates: start: 2009
  23. DONEPEZIL HCL [Suspect]
     Active Substance: DONEPEZIL HYDROCHLORIDE
     Dosage: 10 MG, 1X/DAY
     Dates: start: 2010
  24. SERTRALINE HCL [Suspect]
     Active Substance: SERTRALINE HYDROCHLORIDE
     Dosage: 50 MG, 1X/DAY
     Dates: start: 2013
  25. RISPERIDONE. [Suspect]
     Active Substance: RISPERIDONE
     Dosage: 2 MG, 1X/DAY
     Dates: start: 2011, end: 2011
  26. RISPERIDONE. [Suspect]
     Active Substance: RISPERIDONE
     Dosage: 0.5 MG, 1X/DAY
     Dates: start: 2013, end: 2014
  27. RISPERIDONE. [Suspect]
     Active Substance: RISPERIDONE
     Dosage: 2 MG, 1X/DAY
     Dates: start: 2016, end: 2017
  28. MEMANTINE. [Suspect]
     Active Substance: MEMANTINE
     Dosage: 20 MG, 1X/DAY
     Dates: start: 2013
  29. DONEPEZIL HCL [Suspect]
     Active Substance: DONEPEZIL HYDROCHLORIDE
     Dosage: 10 MG, 1X/DAY
     Dates: start: 2008
  30. DONEPEZIL HCL [Suspect]
     Active Substance: DONEPEZIL HYDROCHLORIDE
     Dosage: 10 MG, 1X/DAY
     Dates: start: 2011
  31. DONEPEZIL HCL [Suspect]
     Active Substance: DONEPEZIL HYDROCHLORIDE
     Dosage: 10 MG, 1X/DAY
     Dates: start: 2013
  32. SERTRALINE HCL [Suspect]
     Active Substance: SERTRALINE HYDROCHLORIDE
     Dosage: 50 MG, 1X/DAY
     Dates: start: 2014
  33. SERTRALINE HCL [Suspect]
     Active Substance: SERTRALINE HYDROCHLORIDE
     Dosage: 50 MG, 1X/DAY
     Dates: start: 2015
  34. SERTRALINE HCL [Suspect]
     Active Substance: SERTRALINE HYDROCHLORIDE
     Dosage: 50 MG, 1X/DAY
     Dates: start: 2019
  35. RISPERIDONE. [Suspect]
     Active Substance: RISPERIDONE
     Indication: NEUROPSYCHIATRIC SYMPTOMS
     Dosage: 3 MG, 1X/DAY
     Dates: start: 200808, end: 2009
  36. METFORMIN [Concomitant]
     Active Substance: METFORMIN HYDROCHLORIDE
     Indication: TYPE 2 DIABETES MELLITUS
     Dosage: 1000 MG, 1X/DAY
  37. DONEPEZIL HCL [Suspect]
     Active Substance: DONEPEZIL HYDROCHLORIDE
     Dosage: 10 MG, 1X/DAY
     Dates: start: 2016
  38. RISPERIDONE. [Suspect]
     Active Substance: RISPERIDONE
     Dosage: 1 MG, 1X/DAY
     Dates: start: 2012, end: 2013
  39. MEMANTINE. [Suspect]
     Active Substance: MEMANTINE
     Dosage: 5 MG, 1X/DAY
     Dates: start: 2018, end: 2019
  40. DONEPEZIL HCL [Suspect]
     Active Substance: DONEPEZIL HYDROCHLORIDE
     Dosage: 10 MG, 1X/DAY
     Dates: start: 2018
  41. SERTRALINE HCL [Suspect]
     Active Substance: SERTRALINE HYDROCHLORIDE
     Dosage: 75 MG, 1X/DAY
     Dates: start: 2009, end: 2010
  42. SERTRALINE HCL [Suspect]
     Active Substance: SERTRALINE HYDROCHLORIDE
     Dosage: 100 MG, 1X/DAY
     Dates: start: 2010, end: 2011
  43. RISPERIDONE. [Suspect]
     Active Substance: RISPERIDONE
     Dosage: 0.5 MG, 1X/DAY
     Dates: start: 2014, end: 2014
  44. MEMANTINE. [Suspect]
     Active Substance: MEMANTINE
     Indication: DEMENTIA ALZHEIMER^S TYPE
     Dosage: TITRATED TO 20 MG/DAY WITHIN 4 WEEKS
     Dates: start: 201002
  45. MEMANTINE. [Suspect]
     Active Substance: MEMANTINE
     Dosage: 20 MG, 1X/DAY
     Dates: start: 2014
  46. MEMANTINE. [Suspect]
     Active Substance: MEMANTINE
     Dosage: 20 MG, 1X/DAY
     Dates: start: 2016
  47. DONEPEZIL HCL [Suspect]
     Active Substance: DONEPEZIL HYDROCHLORIDE
     Dosage: 10 MG, 1X/DAY
     Dates: start: 2017
  48. SERTRALINE HCL [Suspect]
     Active Substance: SERTRALINE HYDROCHLORIDE
     Dosage: 75 MG, 1X/DAY
     Dates: start: 2011, end: 2012
  49. RISPERIDONE. [Suspect]
     Active Substance: RISPERIDONE
     Dosage: 2 MG, 1X/DAY
     Dates: start: 2009, end: 2011
  50. RISPERIDONE. [Suspect]
     Active Substance: RISPERIDONE
     Dosage: 2 MG, 1X/DAY
     Dates: start: 2017, end: 2017
  51. QUETIAPINE. [Suspect]
     Active Substance: QUETIAPINE
     Indication: NEUROPSYCHIATRIC SYMPTOMS
     Dosage: 25 MG, 1X/DAY
     Dates: start: 201601, end: 2018
  52. ENALAPRIL [Concomitant]
     Active Substance: ENALAPRIL
     Indication: HYPERTENSION
     Dosage: 5 MG, 1X/DAY

REACTIONS (5)
  - Emotional poverty [Recovering/Resolving]
  - Immobile [Not Recovered/Not Resolved]
  - Lack of spontaneous speech [Not Recovered/Not Resolved]
  - Cognitive disorder [Unknown]
  - Sedation [Recovering/Resolving]

NARRATIVE: CASE EVENT DATE: 2017
